FAERS Safety Report 16136425 (Version 2)
Quarter: 2019Q2

REPORT INFORMATION
  Report Type: Report from Study
  Country: KR (occurrence: KR)
  Receive Date: 20190331
  Receipt Date: 20190402
  Transmission Date: 20190711
  Serious: Yes (Hospitalization)
  Sender: FDA-Public Use
  Company Number: KR-INCYTE CORPORATION-2019IN002994

PATIENT

DRUGS (3)
  1. PLAVIX [Concomitant]
     Active Substance: CLOPIDOGREL BISULFATE
     Indication: CEREBROVASCULAR ACCIDENT
     Dosage: 75 MG, 1 T QD
     Route: 065
     Dates: start: 201210
  2. JAKAVI [Suspect]
     Active Substance: RUXOLITINIB
     Indication: MYELOFIBROSIS
     Dosage: 20 MG, BID
     Route: 048
     Dates: start: 20190110
  3. WARFARIN [Concomitant]
     Active Substance: WARFARIN
     Indication: CEREBROVASCULAR ACCIDENT
     Dosage: 2 MG, 2 T QD
     Route: 065
     Dates: start: 201210

REACTIONS (7)
  - Blood pressure decreased [Recovering/Resolving]
  - Peripheral ischaemia [Recovering/Resolving]
  - Asthenia [Recovering/Resolving]
  - Back pain [Recovering/Resolving]
  - Embolism arterial [Recovering/Resolving]
  - Sensory loss [Recovering/Resolving]
  - Retroperitoneal haematoma [Unknown]

NARRATIVE: CASE EVENT DATE: 20190130
